FAERS Safety Report 24673217 (Version 1)
Quarter: 2024Q4

REPORT INFORMATION
  Report Type: Spontaneous
  Country: US (occurrence: US)
  Receive Date: 20241128
  Receipt Date: 20241128
  Transmission Date: 20250114
  Serious: No
  Sender: IBSA INSTITUT BIOCHIMIQUE
  Company Number: US-IBSA PHARMA INC.-2024IBS000349

PATIENT

DRUGS (1)
  1. TIROSINT [Suspect]
     Active Substance: LEVOTHYROXINE SODIUM
     Indication: Hypothyroidism
     Dosage: 75 MICROGRAM, QD
     Route: 048
     Dates: start: 20230526, end: 202407

REACTIONS (10)
  - Blood pressure fluctuation [Unknown]
  - Dry eye [Unknown]
  - Blood pressure increased [Unknown]
  - Dyspnoea [Unknown]
  - Nausea [Unknown]
  - Tremor [Unknown]
  - Palpitations [Unknown]
  - Nervousness [Unknown]
  - Weight decreased [Unknown]
  - Insomnia [Unknown]

NARRATIVE: CASE EVENT DATE: 20040201
